FAERS Safety Report 5714319-5 (Version None)
Quarter: 2008Q2

REPORT INFORMATION
  Report Type: 
  Country: None (occurrence: None)
  Receive Date: 20080422
  Receipt Date: 20080422
  Transmission Date: 20081010
  Serious: Yes (Hospitalization)
  Sender: FDA-Public Use
  Company Number: None

PATIENT
  Age: 42 Year
  Sex: Female

DRUGS (5)
  1. INFLIXIMAB ABANA [Suspect]
     Indication: RHEUMATOID ARTHRITIS
     Dosage: 400MG Q4 WEEKS IV
     Route: 042
     Dates: start: 20070627, end: 20070920
  2. SPIRONOLACTONE [Concomitant]
  3. ESCITALOPRAM OXALATE [Concomitant]
  4. FOLIC ACID [Concomitant]
  5. LORATADINE [Concomitant]

REACTIONS (1)
  - INTERSTITIAL LUNG DISEASE [None]
